FAERS Safety Report 25856682 (Version 1)
Quarter: 2025Q3

REPORT INFORMATION
  Report Type: Spontaneous
  Country: JP (occurrence: None)
  Receive Date: 20250929
  Receipt Date: 20250929
  Transmission Date: 20251021
  Serious: Yes (Hospitalization, Other)
  Sender: Alvotech
  Company Number: JP-ALVOTECHPMS-2025-ALVOTECHPMS-005238

PATIENT
  Age: 74 Year
  Sex: Female
  Weight: 46.0 kg

DRUGS (2)
  1. ADALIMUMAB [Suspect]
     Active Substance: ADALIMUMAB
     Indication: Rheumatoid arthritis
     Dosage: 40 MG EVERY 2 WEEKS
  2. METHOTREXATE [Suspect]
     Active Substance: METHOTREXATE
     Indication: Rheumatoid arthritis
     Dosage: 10 MG ONCE A WEEK

REACTIONS (2)
  - Sarcoidosis [Unknown]
  - Renal failure [Recovering/Resolving]
